FAERS Safety Report 8602603-7 (Version None)
Quarter: 2012Q3

REPORT INFORMATION
  Report Type: 
  Country: None (occurrence: None)
  Receive Date: 20120817
  Receipt Date: 19900524
  Transmission Date: 20120928
  Serious: Yes (Other)
  Sender: FDA-Public Use
  Company Number: US-ROCHE-1100692

PATIENT
  Age: 59 Year
  Sex: Male

DRUGS (1)
  1. ACTIVASE [Suspect]
     Indication: MYOCARDIAL INFARCTION

REACTIONS (7)
  - RHYTHM IDIOVENTRICULAR [None]
  - VENTRICULAR TACHYCARDIA [None]
  - HYPOTENSION [None]
  - HAEMATOCRIT DECREASED [None]
  - PLEURITIC PAIN [None]
  - BRADYARRHYTHMIA [None]
  - VENTRICULAR EXTRASYSTOLES [None]
